FAERS Safety Report 15167583 (Version 3)
Quarter: 2018Q3

REPORT INFORMATION
  Report Type: Spontaneous
  Country: US (occurrence: US)
  Receive Date: 20180719
  Receipt Date: 20180823
  Transmission Date: 20181010
  Serious: Yes (Hospitalization)
  Sender: FDA-Public Use
  Company Number: US-ELI_LILLY_AND_COMPANY-US201807005892

PATIENT
  Age: 66 Year
  Sex: Female

DRUGS (12)
  1. REMODULIN [Suspect]
     Active Substance: TREPROSTINIL
     Dosage: 12 NG/KG, CONTINUOUS
     Route: 042
  2. ADCIRCA [Suspect]
     Active Substance: TADALAFIL
     Dosage: 40 MG, DAILY
     Route: 065
     Dates: start: 20160503
  3. AMBRISENTAN [Suspect]
     Active Substance: AMBRISENTAN
     Indication: PULMONARY ARTERIAL HYPERTENSION
     Dosage: 10 MG, DAILY
     Route: 065
     Dates: start: 20160818
  4. REMODULIN [Suspect]
     Active Substance: TREPROSTINIL
     Dosage: 0.014 UG/KG, UNKNOWN
     Route: 042
     Dates: start: 20180703
  5. REMODULIN [Suspect]
     Active Substance: TREPROSTINIL
     Indication: PULMONARY ARTERIAL HYPERTENSION
     Dosage: 16 NKM, CONTINUOUS
     Route: 042
     Dates: start: 20180703
  6. REMODULIN [Suspect]
     Active Substance: TREPROSTINIL
     Dosage: 16 NG/KG/MIN, CONTINOUS
     Route: 042
  7. ORENITRAM [Suspect]
     Active Substance: TREPROSTINIL
     Indication: PULMONARY ARTERIAL HYPERTENSION
     Dosage: 4.5 MG, UNKNOWN
     Route: 065
     Dates: start: 20170503
  8. ORENITRAM [Suspect]
     Active Substance: TREPROSTINIL
     Dosage: 3.75 MG, TID
     Route: 065
     Dates: start: 20180511
  9. ORENITRAM [Suspect]
     Active Substance: TREPROSTINIL
     Dosage: UNK, UNKNOWN
     Route: 065
     Dates: start: 20180601
  10. ORENITRAM [Suspect]
     Active Substance: TREPROSTINIL
     Dosage: 3.5 MG, DAILY
     Route: 065
     Dates: start: 20180504
  11. ADCIRCA [Suspect]
     Active Substance: TADALAFIL
     Indication: PULMONARY ARTERIAL HYPERTENSION
     Dosage: 40 MG, UNK
     Route: 065
     Dates: start: 20160502
  12. ORENITRAM [Suspect]
     Active Substance: TREPROSTINIL
     Dosage: 2.5 MG, DAILY
     Route: 065
     Dates: start: 20180503, end: 20180503

REACTIONS (16)
  - Epistaxis [Recovered/Resolved]
  - Dizziness [Recovered/Resolved]
  - Pain in jaw [Unknown]
  - Dizziness [Not Recovered/Not Resolved]
  - Chest pain [Not Recovered/Not Resolved]
  - Epistaxis [Recovered/Resolved]
  - Flushing [Unknown]
  - Diarrhoea [Not Recovered/Not Resolved]
  - Fatigue [Not Recovered/Not Resolved]
  - Pain [Unknown]
  - Dizziness [Not Recovered/Not Resolved]
  - Oxygen saturation decreased [Unknown]
  - Headache [Not Recovered/Not Resolved]
  - Abdominal discomfort [Recovered/Resolved]
  - Diarrhoea [Not Recovered/Not Resolved]
  - Diarrhoea [Unknown]

NARRATIVE: CASE EVENT DATE: 20170517
